FAERS Safety Report 9315379 (Version 1)
Quarter: 2013Q2

REPORT INFORMATION
  Report Type: Spontaneous
  Country: IT (occurrence: IT)
  Receive Date: 20130529
  Receipt Date: 20130529
  Transmission Date: 20140414
  Serious: Yes (Other)
  Sender: FDA-Public Use
  Company Number: IT-VERTEX PHARMACEUTICALS INC-2013-006512

PATIENT
  Age: 76 Year
  Sex: Female
  Weight: 66 kg

DRUGS (5)
  1. INCIVO [Suspect]
     Indication: CHRONIC HEPATITIS C
     Dosage: 2250 MG, QD
     Route: 048
     Dates: start: 20130322, end: 20130418
  2. PEGINTRON [Suspect]
     Indication: CHRONIC HEPATITIS C
     Dosage: DOSAGE FORM: INJECTION
     Route: 058
     Dates: start: 20130322, end: 20130522
  3. COPEGUS [Suspect]
     Indication: CHRONIC HEPATITIS C
     Dosage: DOSAGE FORM: TABLETS
     Route: 048
     Dates: start: 20130322, end: 20130522
  4. KARVEZIDE [Concomitant]
     Indication: HYPERTENSION
     Dosage: DOSAGE FORM: TABLETS
     Route: 048
  5. EUTIROX [Concomitant]
     Indication: HYPOTHYROIDISM
     Dosage: DOSAGE FORM: TABLETS
     Route: 048

REACTIONS (1)
  - Rash generalised [Recovered/Resolved]
